FAERS Safety Report 6455173-6 (Version None)
Quarter: 2009Q4

REPORT INFORMATION
  Report Type: 
  Country: None (occurrence: None)
  Receive Date: 20091124
  Receipt Date: 20091123
  Transmission Date: 20100525
  Serious: Yes (Other)
  Sender: FDA-Public Use
  Company Number: US-GILEAD-2009-0024789

PATIENT
  Sex: Female

DRUGS (10)
  1. LETAIRIS [Suspect]
     Indication: PULMONARY ARTERIAL HYPERTENSION
     Route: 048
     Dates: start: 20090427
  2. MECLIZINE [Concomitant]
  3. PLAVIX [Concomitant]
  4. FUROSEMIDE [Concomitant]
  5. ASPIRIN [Concomitant]
  6. LOVASTATIN [Concomitant]
  7. LORATADINE [Concomitant]
  8. PRILOSEC [Concomitant]
  9. DESIPRAMINE [Concomitant]
  10. KLOR-CON [Concomitant]

REACTIONS (2)
  - RASH [None]
  - VASCULITIS [None]
